FAERS Safety Report 8023840-9 (Version None)
Quarter: 2011Q4

REPORT INFORMATION
  Report Type: 
  Country: None (occurrence: None)
  Receive Date: 20111130
  Receipt Date: 20110201
  Transmission Date: 20120403
  Serious: Yes (Hospitalization)
  Sender: FDA-Public Use
  Company Number: 319366

PATIENT
  Age: 53 Year
  Sex: Male
  Weight: 68 kg

DRUGS (3)
  1. NOVOLOG [Suspect]
     Indication: TYPE 1 DIABETES MELLITUS
     Dosage: PRE-PROGRAMMING DOSAGE, SUBCUTAN.-PUMP
     Route: 058
  2. METOPROLOL TARTRATE [Concomitant]
  3. LISINOPRIL [Concomitant]

REACTIONS (5)
  - DRUG INEFFECTIVE [None]
  - DIARRHOEA [None]
  - BLOOD GLUCOSE INCREASED [None]
  - MALAISE [None]
  - VOMITING [None]
